FAERS Safety Report 12095269 (Version 1)
Quarter: 2016Q1

REPORT INFORMATION
  Report Type: Spontaneous
  Country: US (occurrence: US)
  Receive Date: 20160219
  Receipt Date: 20160219
  Transmission Date: 20160526
  Serious: No
  Sender: FDA-Public Use
  Company Number: US-GLAXOSMITHKLINE-US2015GSK107701

PATIENT
  Age: 75 Year
  Sex: Female

DRUGS (2)
  1. TANZEUM [Suspect]
     Active Substance: ALBIGLUTIDE
     Dosage: 30 UNK, UNK
     Dates: start: 201507
  2. TANZEUM [Suspect]
     Active Substance: ALBIGLUTIDE
     Indication: TYPE 2 DIABETES MELLITUS
     Dosage: 30 MG, WE
     Dates: start: 20150725

REACTIONS (3)
  - Injection site erythema [Unknown]
  - Circumstance or information capable of leading to medication error [Unknown]
  - Injection site reaction [Unknown]

NARRATIVE: CASE EVENT DATE: 201601
